FAERS Safety Report 9729972 (Version 3)
Quarter: 2014Q1

REPORT INFORMATION
  Report Type: Spontaneous
  Country: JP (occurrence: JP)
  Receive Date: 20131204
  Receipt Date: 20140131
  Transmission Date: 20141002
  Serious: Yes (Hospitalization)
  Sender: FDA-Public Use
  Company Number: JP-ABBVIE-11P-087-0838924-00

PATIENT
  Age: 56 Year
  Sex: Male
  Weight: 45.6 kg

DRUGS (9)
  1. METHOTREXATE [Suspect]
     Dates: start: 200910, end: 201005
  2. METHOTREXATE [Suspect]
     Dates: start: 201007, end: 20100804
  3. METHOTREXATE [Suspect]
     Dates: start: 20110318
  4. FOLIC ACID [Concomitant]
     Indication: FOLATE DEFICIENCY
     Route: 048
     Dates: start: 200909, end: 201005
  5. FOLIC ACID [Concomitant]
     Dates: start: 201007, end: 20100804
  6. SUCRALFATE [Concomitant]
     Indication: GASTRITIS
     Route: 048
     Dates: end: 20110121
  7. RABEPRAZOLE SODIUM [Concomitant]
     Indication: GASTROOESOPHAGEAL REFLUX DISEASE
     Route: 048
  8. ADALIMUMAB [Suspect]
     Indication: RHEUMATOID ARTHRITIS
     Dosage: TOTAL 9 DOSES
     Route: 058
     Dates: start: 20100203, end: 20100526
  9. METHOTREXATE [Suspect]
     Indication: RHEUMATOID ARTHRITIS
     Route: 048
     Dates: start: 20041210

REACTIONS (2)
  - Cold type haemolytic anaemia [Recovered/Resolved]
  - Bronchitis [Recovered/Resolved]
